FAERS Safety Report 17186203 (Version 2)
Quarter: 2019Q4

REPORT INFORMATION
  Report Type: Spontaneous
  Country: JP (occurrence: JP)
  Receive Date: 20191220
  Receipt Date: 20191224
  Transmission Date: 20200122
  Serious: Yes (Death)
  Sender: FDA-Public Use
  Company Number: JP-JNJFOC-20191043677

PATIENT
  Age: 78 Year
  Sex: Male
  Weight: 54.5 kg

DRUGS (15)
  1. BAYASPIRIN [Suspect]
     Active Substance: ASPIRIN
     Indication: ANGINA PECTORIS
     Dosage: DAILY 100 MG
     Route: 048
     Dates: end: 20180604
  2. FERROUS SULFATE. [Concomitant]
     Active Substance: FERROUS SULFATE
     Dosage: DAYLY 210 MG
     Route: 048
     Dates: start: 20170519, end: 20180604
  3. RILMAZAFONE HYDROCHLORIDE [Concomitant]
     Active Substance: RILMAZAFONE HYDROCHLORIDE
     Dosage: DAYLY 1 MG
     Route: 048
     Dates: start: 20171201, end: 20180604
  4. ALLOPURINOL. [Concomitant]
     Active Substance: ALLOPURINOL
     Dosage: DAYLY 100 MG
     Route: 048
     Dates: end: 20180604
  5. RIVAROXABAN [Suspect]
     Active Substance: RIVAROXABAN
     Indication: THROMBOSIS PROPHYLAXIS
  6. BISOPROLOL FUMARATE. [Concomitant]
     Active Substance: BISOPROLOL FUMARATE
     Dosage: DAILY 1.25 MG
     Route: 048
     Dates: start: 20100217, end: 20180604
  7. PICOBEN [Concomitant]
     Dosage: DAYLY 2.5 MG
     Route: 048
     Dates: start: 20170417, end: 20180604
  8. FUROSEMIDE. [Concomitant]
     Active Substance: FUROSEMIDE
     Dosage: DAILY DOSE 10 MG
     Route: 048
     Dates: start: 20100217, end: 20180604
  9. ISOSORBIDE. [Concomitant]
     Active Substance: ISOSORBIDE
     Dosage: DAYLY 40 MG
     Route: 003
     Dates: start: 20170921, end: 20180604
  10. ESOMEPRAZOLE. [Concomitant]
     Active Substance: ESOMEPRAZOLE MAGNESIUM
     Indication: PROPHYLAXIS
     Dosage: DAYLY 20 MG
     Route: 048
     Dates: start: 20141003, end: 20180604
  11. RIVAROXABAN [Suspect]
     Active Substance: RIVAROXABAN
     Indication: ATRIAL FIBRILLATION
     Dosage: 10 MG, QD
     Route: 048
     Dates: start: 20160715, end: 20180604
  12. BAYASPIRIN [Suspect]
     Active Substance: ASPIRIN
     Indication: THROMBOSIS PROPHYLAXIS
  13. VASOLAN [ISOXSUPRINE HYDROCHLORIDE] [Concomitant]
     Active Substance: ISOXSUPRINE HYDROCHLORIDE
     Dosage: DAYLY 80 MG
     Route: 048
     Dates: start: 20100217, end: 20180604
  14. AZOSEMIDE [Concomitant]
     Active Substance: AZOSEMIDE
     Dosage: DAILY 60 MG
     Route: 048
     Dates: start: 20170417, end: 20180604
  15. MAGMITT [Concomitant]
     Active Substance: MAGNESIUM OXIDE
     Dosage: DAYLY 990 MG
     Route: 048
     Dates: start: 20140710, end: 20180604

REACTIONS (3)
  - Putamen haemorrhage [Fatal]
  - Brain herniation [Fatal]
  - Labelled drug-drug interaction medication error [Fatal]

NARRATIVE: CASE EVENT DATE: 20180604
